FAERS Safety Report 9893695 (Version 3)
Quarter: 2014Q1

REPORT INFORMATION
  Report Type: Spontaneous
  Country: IT (occurrence: IT)
  Receive Date: 20140213
  Receipt Date: 20140220
  Transmission Date: 20141002
  Serious: Yes (Other)
  Sender: FDA-Public Use
  Company Number: IT-AMGEN-ITASP2013086993

PATIENT
  Age: 68 Year
  Sex: Male

DRUGS (6)
  1. VECTIBIX [Suspect]
     Indication: COLON CANCER
     Dosage: 6 MG/KG, CYCLICAL
     Route: 042
     Dates: start: 20121114, end: 20130111
  2. CARDURA [Concomitant]
     Indication: HYPERTENSION
     Dosage: 1 POSOLOGIC UNIT, UNK
     Route: 048
     Dates: start: 20090803, end: 20130207
  3. PANTORC [Concomitant]
     Indication: GASTROOESOPHAGEAL REFLUX PROPHYLAXIS
     Dosage: 1 POSOLOGIC UNIT, UNK
     Route: 048
     Dates: start: 20091116, end: 20130207
  4. CARDIOASPIRIN [Concomitant]
     Indication: THROMBOSIS PROPHYLAXIS
     Dosage: 1 POSOLOGIC UNIT, UNK
     Route: 065
     Dates: start: 20090915, end: 20130207
  5. MOVICOL                            /01625101/ [Concomitant]
     Indication: ASTRINGENT THERAPY
     Dosage: 2 POSOLOGIC UNIT, UNK
     Route: 048
     Dates: start: 20121105, end: 20130207
  6. SELOKEN                            /00376902/ [Concomitant]
     Indication: HYPERTENSION
     Dosage: 1 POSOLOGIC UNIT, UNK
     Route: 048
     Dates: start: 20090915, end: 20130207

REACTIONS (3)
  - Febrile neutropenia [Unknown]
  - Rash pustular [Recovered/Resolved]
  - Pruritus [Recovered/Resolved]
